FAERS Safety Report 18661970 (Version 1)
Quarter: 2020Q4

REPORT INFORMATION
  Report Type: Report from Study
  Country: US (occurrence: US)
  Receive Date: 20201224
  Receipt Date: 20201224
  Transmission Date: 20210114
  Serious: Yes (Other)
  Sender: FDA-Public Use
  Company Number: US-TAKEDA-US202003397

PATIENT
  Sex: Female

DRUGS (1)
  1. HUMAN NORMAL IMMUNOGLOBULIN; LIQUID [Suspect]
     Active Substance: HUMAN IMMUNOGLOBULIN G
     Indication: IMMUNODEFICIENCY COMMON VARIABLE
     Dosage: UNK
     Route: 042

REACTIONS (16)
  - Infusion related reaction [Unknown]
  - Poor venous access [Unknown]
  - Loss of personal independence in daily activities [Unknown]
  - Influenza [Unknown]
  - Illness [Unknown]
  - Fatigue [Unknown]
  - Incorrect drug administration rate [Unknown]
  - Blood immunoglobulin M decreased [Unknown]
  - Herpes zoster [Unknown]
  - Viral infection [Unknown]
  - Anxiety [Unknown]
  - Hypersensitivity [Unknown]
  - Asthenia [Unknown]
  - Inappropriate schedule of product administration [Unknown]
  - Syncope [Unknown]
  - Ill-defined disorder [Unknown]
